FAERS Safety Report 23123417 (Version 4)
Quarter: 2024Q3

REPORT INFORMATION
  Report Type: Spontaneous
  Country: US (occurrence: US)
  Receive Date: 20231030
  Receipt Date: 20240719
  Transmission Date: 20241017
  Serious: No
  Sender: GLAXOSMITHKLINE
  Company Number: US-GSK-US2023AMR147752

PATIENT
  Sex: Female
  Weight: 59 kg

DRUGS (4)
  1. NUCALA [Suspect]
     Active Substance: MEPOLIZUMAB
     Indication: Asthma
     Dosage: 100 MG,3 DOSES
  2. TRELEGY ELLIPTA [Suspect]
     Active Substance: FLUTICASONE FUROATE\UMECLIDINIUM BROMIDE\VILANTEROL TRIFENATATE
     Indication: Product used for unknown indication
     Dosage: 1 PUFF(S), QD
  3. DUPIXENT [Suspect]
     Active Substance: DUPILUMAB
     Indication: Asthma
     Dosage: 300 MG, Q2W, 300MG/2ML EVERY OTHER DAY
     Route: 058
  4. XOPENEX [Concomitant]
     Active Substance: LEVALBUTEROL HYDROCHLORIDE
     Indication: Product used for unknown indication
     Dosage: 2 PUFF(S), EVERY 4-6 HOURS AS NEEDED

REACTIONS (5)
  - Urticaria [Unknown]
  - Hypersensitivity [Unknown]
  - Rash [Unknown]
  - Dyspnoea [Unknown]
  - Cough [Unknown]
